FAERS Safety Report 20587108 (Version 1)
Quarter: 2022Q1

REPORT INFORMATION
  Report Type: Spontaneous
  Country: US (occurrence: US)
  Receive Date: 20220314
  Receipt Date: 20220314
  Transmission Date: 20220423
  Serious: No
  Sender: FDA-Public Use
  Company Number: US-SA-SAC20220307000133

PATIENT
  Age: 73 Year
  Sex: Male

DRUGS (2)
  1. JEVTANA [Suspect]
     Active Substance: CABAZITAXEL
     Indication: Palliative care
     Dosage: UNK
     Dates: start: 202102
  2. TAXOTERE [Concomitant]
     Active Substance: DOCETAXEL
     Indication: Palliative care
     Dosage: UNK
     Dates: start: 2021

REACTIONS (1)
  - Prostatic specific antigen increased [Unknown]
